FAERS Safety Report 24887002 (Version 2)
Quarter: 2025Q1

REPORT INFORMATION
  Report Type: Spontaneous
  Country: RO (occurrence: RO)
  Receive Date: 20250127
  Receipt Date: 20250203
  Transmission Date: 20250408
  Serious: Yes (Hospitalization, Other)
  Sender: BANNER
  Company Number: None

PATIENT
  Age: 49 Year
  Sex: Female

DRUGS (7)
  1. ACETAMINOPHEN [Suspect]
     Active Substance: ACETAMINOPHEN
     Indication: Abdominal pain
  2. IBUPROFEN [Suspect]
     Active Substance: IBUPROFEN
     Indication: Abdominal pain
  3. DICLOFENAC [Suspect]
     Active Substance: DICLOFENAC
     Indication: Abdominal pain
  4. NAPROXEN [Suspect]
     Active Substance: NAPROXEN
     Indication: Abdominal pain
  5. KETOPROFEN [Suspect]
     Active Substance: KETOPROFEN
     Indication: Abdominal pain
  6. METAMIZOLE [Suspect]
     Active Substance: METAMIZOLE
     Indication: Abdominal pain
  7. AMOXICILLIN\CLAVULANIC ACID [Suspect]
     Active Substance: AMOXICILLIN\CLAVULANIC ACID
     Indication: Abdominal pain

REACTIONS (10)
  - Abdominal pain lower [Recovered/Resolved]
  - Pyrexia [Recovered/Resolved]
  - Vomiting [Recovered/Resolved]
  - Jaundice [Recovered/Resolved]
  - Ocular icterus [Recovered/Resolved]
  - Back pain [Recovered/Resolved]
  - Drug-induced liver injury [Recovered/Resolved]
  - Mixed liver injury [Unknown]
  - Hepatotoxicity [Unknown]
  - Hepatic cytolysis [Unknown]
